FAERS Safety Report 9601634 (Version 1)
Quarter: 2013Q4

REPORT INFORMATION
  Report Type: Spontaneous
  Country: GB (occurrence: None)
  Receive Date: 20131002
  Receipt Date: 20131002
  Transmission Date: 20140711
  Serious: Yes (Disabling, Other)
  Sender: FDA-Public Use
  Company Number: AUR-APL-2013-07925

PATIENT
  Age: 24 Year
  Sex: Male

DRUGS (4)
  1. SERTRALINE (SERTRALINE) [Suspect]
     Indication: PRODUCT USED FOR UNKNOWN INDICATION
  2. SERTRALINE (SERTRALINE) [Suspect]
     Indication: PRODUCT USED FOR UNKNOWN INDICATION
  3. LANSOPRAZOLE (LANSOPRAZOLE) [Concomitant]
  4. NAPROXEN (NAPROXEN) [Concomitant]

REACTIONS (9)
  - Mania [None]
  - Somnolence [None]
  - Product substitution issue [None]
  - Euphoric mood [None]
  - Restlessness [None]
  - Energy increased [None]
  - Paraesthesia [None]
  - Insomnia [None]
  - Abnormal behaviour [None]
